FAERS Safety Report 4553273-9 (Version None)
Quarter: 2005Q1

REPORT INFORMATION
  Report Type: 
  Country: None (occurrence: None)
  Receive Date: 20050112
  Receipt Date: 20041222
  Transmission Date: 20050727
  Serious: Yes (Hospitalization)
  Sender: FDA-Public Use
  Company Number: USA041184399

PATIENT
  Age: 94 Year
  Sex: Female

DRUGS (1)
  1. FORTEO [Suspect]
     Indication: OSTEOPOROSIS
     Dosage: 20 UG DAY
     Dates: start: 20041119

REACTIONS (6)
  - ASTHENIA [None]
  - DECREASED APPETITE [None]
  - GASTRITIS [None]
  - HAEMATEMESIS [None]
  - HIATUS HERNIA [None]
  - NAUSEA [None]
